FAERS Safety Report 6505953-3 (Version None)
Quarter: 2009Q4

REPORT INFORMATION
  Report Type: 
  Country: None (occurrence: None)
  Receive Date: 20091218
  Receipt Date: 20091216
  Transmission Date: 20100525
  Serious: Yes (Hospitalization)
  Sender: FDA-Public Use
  Company Number: FR-WYE-G05162709

PATIENT
  Sex: Male

DRUGS (2)
  1. ADVIL LIQUI-GELS [Suspect]
     Indication: INFLUENZA
     Dosage: UNKNOWN
     Route: 048
     Dates: start: 20091204, end: 20091201
  2. PARACETAMOL [Concomitant]
     Indication: INFLUENZA
     Dosage: UNKNOWN
     Route: 048
     Dates: start: 20091204

REACTIONS (2)
  - HAEMATEMESIS [None]
  - HAEMOPTYSIS [None]
